FAERS Safety Report 23977782 (Version 1)
Quarter: 2024Q2

REPORT INFORMATION
  Report Type: Report from Study
  Country: US (occurrence: US)
  Receive Date: 20240614
  Receipt Date: 20240614
  Transmission Date: 20240716
  Serious: Yes (Other)
  Sender: FDA-Public Use
  Company Number: US-ABBVIE-5754366

PATIENT
  Age: 69 Year
  Sex: Female

DRUGS (2)
  1. DUOPA [Suspect]
     Active Substance: CARBIDOPA\LEVODOPA
     Indication: Product used for unknown indication
     Route: 050
     Dates: start: 20230913
  2. DUOPA [Suspect]
     Active Substance: CARBIDOPA\LEVODOPA
     Dates: start: 20240220

REACTIONS (3)
  - Atrial fibrillation [Recovered/Resolved]
  - Insomnia [Recovering/Resolving]
  - Oedema peripheral [Recovering/Resolving]

NARRATIVE: CASE EVENT DATE: 20240501
